FAERS Safety Report 21817353 (Version 7)
Quarter: 2024Q4

REPORT INFORMATION
  Report Type: Spontaneous
  Country: US (occurrence: US)
  Receive Date: 20230104
  Receipt Date: 20241009
  Transmission Date: 20250115
  Serious: No
  Sender: PFIZER
  Company Number: US-PFIZER INC-PV202200132236

PATIENT
  Age: 84 Year
  Sex: Female
  Weight: 93.44 kg

DRUGS (5)
  1. IBRANCE [Suspect]
     Active Substance: PALBOCICLIB
     Indication: Breast cancer
     Dosage: 75 MG TABLET, FOR 3 WEEKS ON AND ONE WEEK OFF BY MOUTH
     Route: 048
     Dates: start: 2023
  2. PRAVASTATIN [Concomitant]
     Active Substance: PRAVASTATIN
     Indication: Blood cholesterol abnormal
     Dosage: 40MG TABLET ONCE A DAY BY MOUTH
     Route: 048
  3. LEVOTHYROXINE [Concomitant]
     Active Substance: LEVOTHYROXINE
     Indication: Thyroid disorder
     Dosage: 50MCG LITTLE TABLET ONCE A DAY BY MOUTH
     Route: 048
  4. RAMIPRIL [Concomitant]
     Active Substance: RAMIPRIL
     Indication: Prophylaxis
     Dosage: 2.5MG CAPSULE ONCE A DAY BY MOUTH
     Route: 048
  5. LETROZOLE [Concomitant]
     Active Substance: LETROZOLE
     Indication: Neoplasm malignant
     Dosage: 2.5MG LITTLE TINY TABLET ONCE A DAY BY MOUTH
     Route: 048

REACTIONS (6)
  - Oesophageal pain [Unknown]
  - Throat irritation [Unknown]
  - Vomiting [Unknown]
  - Loss of personal independence in daily activities [Unknown]
  - Weight decreased [Unknown]
  - Illness [Unknown]

NARRATIVE: CASE EVENT DATE: 20230101
